FAERS Safety Report 5171282-6 (Version None)
Quarter: 2006Q4

REPORT INFORMATION
  Report Type: 
  Country: None (occurrence: None)
  Receive Date: 20061213
  Receipt Date: 20060818
  Transmission Date: 20070319
  Serious: Yes (Other)
  Sender: FDA-Public Use
  Company Number: US-AMGEN-KDL190532

PATIENT
  Sex: Female

DRUGS (4)
  1. ENBREL [Suspect]
     Indication: RHEUMATOID ARTHRITIS
     Route: 058
     Dates: start: 20000101
  2. MOBIC [Concomitant]
     Dates: start: 20060125
  3. METHOTREXATE [Concomitant]
     Dates: start: 20050101
  4. FOLIC ACID [Concomitant]
     Dates: start: 20050101

REACTIONS (2)
  - INJECTION SITE BRUISING [None]
  - MYOCARDIAL INFARCTION [None]
